FAERS Safety Report 14147901 (Version 2)
Quarter: 2018Q1

REPORT INFORMATION
  Report Type: Report from Study
  Country: US (occurrence: US)
  Receive Date: 20171031
  Receipt Date: 20180123
  Transmission Date: 20180508
  Serious: No
  Sender: FDA-Public Use
  Company Number: PHEH2017US035203

PATIENT
  Sex: Male

DRUGS (1)
  1. COSENTYX [Suspect]
     Active Substance: SECUKINUMAB
     Indication: ARTHRITIS
     Dosage: 150 MG, QMO
     Route: 058

REACTIONS (4)
  - Pain [Unknown]
  - Herpes zoster [Unknown]
  - Gout [Unknown]
  - Drug ineffective [Unknown]
